FAERS Safety Report 5556943-9 (Version None)
Quarter: 2007Q4

REPORT INFORMATION
  Report Type: 
  Country: None (occurrence: None)
  Receive Date: 20071211
  Receipt Date: 20071211
  Transmission Date: 20080405
  Serious: Yes (Other)
  Sender: FDA-Public Use
  Company Number: None

PATIENT
  Sex: Male
  Weight: 71.2 kg

DRUGS (1)
  1. ALIMTA [Suspect]

REACTIONS (4)
  - OXYGEN SATURATION DECREASED [None]
  - PRURITUS [None]
  - SOMNOLENCE [None]
  - URTICARIA [None]
